FAERS Safety Report 5748402-5 (Version None)
Quarter: 2008Q2

REPORT INFORMATION
  Report Type: 
  Country: None (occurrence: None)
  Receive Date: 20080523
  Receipt Date: 20080514
  Transmission Date: 20081010
  Serious: Yes (Hospitalization, Disabling)
  Sender: FDA-Public Use
  Company Number: DE-PFIZER INC-2008036816

PATIENT
  Sex: Male
  Weight: 75 kg

DRUGS (3)
  1. LYRICA [Suspect]
     Indication: ANXIETY
     Dosage: DAILY DOSE:450MG
     Route: 048
  2. VIANI [Concomitant]
  3. DICLO [Concomitant]
     Route: 048

REACTIONS (2)
  - SINUS BRADYCARDIA [None]
  - SYNCOPE [None]
